FAERS Safety Report 25122486 (Version 1)
Quarter: 2025Q1

REPORT INFORMATION
  Report Type: Report from Study
  Country: US (occurrence: US)
  Receive Date: 20250326
  Receipt Date: 20250326
  Transmission Date: 20250409
  Serious: Yes (Other)
  Sender: AMGEN
  Company Number: US-AMGEN-USASP2025053185

PATIENT
  Sex: Female

DRUGS (2)
  1. PROLIA [Suspect]
     Active Substance: DENOSUMAB
     Indication: Osteoporosis
     Route: 065
  2. HUMIRA [Concomitant]
     Active Substance: ADALIMUMAB

REACTIONS (7)
  - Encephalitis autoimmune [Not Recovered/Not Resolved]
  - Sjogren^s syndrome [Unknown]
  - Diarrhoea [Not Recovered/Not Resolved]
  - Neck pain [Not Recovered/Not Resolved]
  - Arthralgia [Not Recovered/Not Resolved]
  - Arthritis [Unknown]
  - Psychotic disorder [Unknown]
